FAERS Safety Report 6809509-4 (Version None)
Quarter: 2010Q2

REPORT INFORMATION
  Report Type: 
  Country: None (occurrence: None)
  Receive Date: 20100630
  Receipt Date: 20100625
  Transmission Date: 20101027
  Serious: Yes (Other)
  Sender: FDA-Public Use
  Company Number: IN-BRISTOL-MYERS SQUIBB COMPANY-15167315

PATIENT

DRUGS (1)
  1. ONGLYZA [Suspect]

REACTIONS (2)
  - DRUG LEVEL INCREASED [None]
  - GRAFT DYSFUNCTION [None]
